FAERS Safety Report 5040773-0 (Version None)
Quarter: 2006Q2

REPORT INFORMATION
  Report Type: 
  Country: None (occurrence: None)
  Receive Date: 20060601
  Receipt Date: 20060306
  Transmission Date: 20061013
  Serious: No
  Sender: FDA-Public Use
  Company Number: 2006PV009733

PATIENT
  Age: 62 Year
  Sex: Male
  Weight: 98.8842 kg

DRUGS (6)
  1. BYETTA [Suspect]
     Indication: DIABETES MELLITUS NON-INSULIN-DEPENDENT
     Dosage: 5 MCG;BID;SC
     Route: 058
     Dates: start: 20060224, end: 20060306
  2. ACTOS [Concomitant]
  3. STARLIX [Concomitant]
  4. METANX [Concomitant]
  5. CADUET [Concomitant]
  6. COUMADIN [Concomitant]

REACTIONS (1)
  - BLOOD GLUCOSE INCREASED [None]
